FAERS Safety Report 18797282 (Version 3)
Quarter: 2021Q1

REPORT INFORMATION
  Report Type: Report from Study
  Country: None (occurrence: NL)
  Receive Date: 20210127
  Receipt Date: 20210209
  Transmission Date: 20210419
  Serious: Yes (Hospitalization)
  Sender: FDA-Public Use
  Company Number: NL-ABBVIE-21K-114-3747395-00

PATIENT
  Sex: Male

DRUGS (2)
  1. DUODOPA [Suspect]
     Active Substance: CARBIDOPA\LEVODOPA
  2. DUODOPA [Suspect]
     Active Substance: CARBIDOPA\LEVODOPA
     Indication: PARKINSON^S DISEASE
     Route: 050
     Dates: start: 20151116

REACTIONS (8)
  - Respiratory tract infection [Unknown]
  - Enteral nutrition [Recovered/Resolved]
  - On and off phenomenon [Recovering/Resolving]
  - Drug interaction [Unknown]
  - Walking aid user [Unknown]
  - Complication associated with device [Unknown]
  - Pneumonia aspiration [Unknown]
  - C-reactive protein abnormal [Unknown]

NARRATIVE: CASE EVENT DATE: 2021
